FAERS Safety Report 20649711 (Version 1)
Quarter: 2022Q1

REPORT INFORMATION
  Report Type: Spontaneous
  Country: US (occurrence: None)
  Receive Date: 20220329
  Receipt Date: 20220329
  Transmission Date: 20220424
  Serious: Yes (Other)
  Sender: FDA-Public Use
  Company Number: None

PATIENT
  Age: 31 Year
  Sex: Female
  Weight: 72.9 kg

DRUGS (2)
  1. LEVOTHYROXINE [Suspect]
     Active Substance: LEVOTHYROXINE
     Indication: Hypothyroidism
     Dosage: FREQUENCY : DAILY;?
     Route: 048
     Dates: start: 20200622, end: 20200920
  2. EUTHYROX [Suspect]
     Active Substance: LEVOTHYROXINE SODIUM
     Indication: Hypothyroidism
     Dosage: FREQUENCY : DAILY;?
     Route: 048
     Dates: start: 20200329, end: 20200620

REACTIONS (8)
  - Product substitution issue [None]
  - Therapy non-responder [None]
  - Dry skin [None]
  - Alopecia [None]
  - Fatigue [None]
  - Myalgia [None]
  - Menstruation irregular [None]
  - Insurance issue [None]

NARRATIVE: CASE EVENT DATE: 20220329
